FAERS Safety Report 25114850 (Version 2)
Quarter: 2025Q1

REPORT INFORMATION
  Report Type: Spontaneous
  Country: BR (occurrence: BR)
  Receive Date: 20250324
  Receipt Date: 20250329
  Transmission Date: 20250409
  Serious: No
  Sender: IPSEN BIOPHARMACEUTICALS, INC.
  Company Number: BR-IPSEN Group, Research and Development-2025-06622

PATIENT
  Age: 55 Year
  Sex: Male

DRUGS (1)
  1. DYSPORT [Suspect]
     Active Substance: ABOBOTULINUMTOXINA
     Indication: Skin cosmetic procedure
     Route: 065

REACTIONS (4)
  - Pain [Recovered/Resolved]
  - Papule [Unknown]
  - Injection site pain [Recovered/Resolved]
  - Off label use [Unknown]
